FAERS Safety Report 7040913-8 (Version None)
Quarter: 2010Q4

REPORT INFORMATION
  Report Type: 
  Country: None (occurrence: None)
  Receive Date: 20101013
  Receipt Date: 20100930
  Transmission Date: 20110411
  Serious: Yes (Death)
  Sender: FDA-Public Use
  Company Number: DK-KINGPHARMUSA00001-K201001111

PATIENT
  Age: 58 Year
  Sex: Male

DRUGS (1)
  1. EPIPEN [Suspect]
     Indication: ARTHROPOD STING
     Dosage: 0.3 MG, SINGLE
     Dates: start: 20100801, end: 20100801

REACTIONS (2)
  - ACCIDENTAL EXPOSURE [None]
  - DRUG INEFFECTIVE [None]
